FAERS Safety Report 16082348 (Version 3)
Quarter: 2020Q1

REPORT INFORMATION
  Report Type: Spontaneous
  Country: US (occurrence: US)
  Receive Date: 20190318
  Receipt Date: 20200114
  Transmission Date: 20200409
  Serious: No
  Sender: FDA-Public Use
  Company Number: US-BIOGEN-2019BI00701322

PATIENT
  Age: 75 Year
  Sex: Female

DRUGS (1)
  1. TYSABRI [Suspect]
     Active Substance: NATALIZUMAB
     Indication: MULTIPLE SCLEROSIS
     Route: 050
     Dates: start: 20121211, end: 20190108

REACTIONS (3)
  - Musculoskeletal disorder [Not Recovered/Not Resolved]
  - Acarodermatitis [Unknown]
  - Bed bug infestation [Unknown]

NARRATIVE: CASE EVENT DATE: 201902
